FAERS Safety Report 10590317 (Version 1)
Quarter: 2014Q4

REPORT INFORMATION
  Report Type: Spontaneous
  Country: US (occurrence: None)
  Receive Date: 20141117
  Receipt Date: 20141117
  Transmission Date: 20150529
  Serious: Yes (Disabling)
  Sender: FDA-Public Use
  Company Number: None

PATIENT
  Age: 65 Year
  Sex: Female
  Weight: 99.79 kg

DRUGS (1)
  1. LIPITOR [Suspect]
     Active Substance: ATORVASTATIN CALCIUM
     Dosage: 1 PILL/ DAY
     Route: 048

REACTIONS (5)
  - Depression [None]
  - Anger [None]
  - Feeling abnormal [None]
  - Fear [None]
  - Peripheral sensory neuropathy [None]
